FAERS Safety Report 6704625-X (Version None)
Quarter: 2010Q2

REPORT INFORMATION
  Report Type: 
  Country: None (occurrence: None)
  Receive Date: 20100430
  Receipt Date: 20100423
  Transmission Date: 20101027
  Serious: Yes (Life-Threatening, Hospitalization)
  Sender: FDA-Public Use
  Company Number: FR-TEVA-232158ISR

PATIENT
  Sex: Female

DRUGS (3)
  1. COPAXONE [Suspect]
     Dates: start: 20080820
  2. SERTRALINE HCL [Concomitant]
     Route: 048
     Dates: start: 20091202
  3. DIAZEPAM [Concomitant]
     Route: 048

REACTIONS (3)
  - DEPRESSION [None]
  - OBSESSIVE-COMPULSIVE PERSONALITY DISORDER [None]
  - SUICIDE ATTEMPT [None]
